FAERS Safety Report 14223624 (Version 1)
Quarter: 2017Q4

REPORT INFORMATION
  Report Type: Spontaneous
  Country: US (occurrence: US)
  Receive Date: 20171124
  Receipt Date: 20171124
  Transmission Date: 20180321
  Serious: No
  Sender: FDA-Public Use
  Company Number: US-GLENMARK PHARMACEUTICALS-2017GMK029252

PATIENT
  Age: 45 Year
  Sex: Female
  Weight: 74.83 kg

DRUGS (3)
  1. LIDOCAINE OINTMENT USP 5% [Suspect]
     Active Substance: LIDOCAINE
     Indication: ANAESTHESIA
     Dosage: APPLIED IT ONCE ON LEFT SIDE OF FACE
     Route: 061
     Dates: start: 20170929, end: 20170929
  2. HYZAAR [Concomitant]
     Active Substance: HYDROCHLOROTHIAZIDE\LOSARTAN POTASSIUM
     Indication: HYPERTENSION
     Dosage: 50 MG, QD
     Route: 048
  3. EFFEXOR [Concomitant]
     Active Substance: VENLAFAXINE HYDROCHLORIDE
     Indication: ANXIETY
     Dosage: 225 MG, QD
     Route: 048

REACTIONS (1)
  - Drug ineffective [Unknown]

NARRATIVE: CASE EVENT DATE: 20170929
